FAERS Safety Report 5450039-2 (Version None)
Quarter: 2007Q3

REPORT INFORMATION
  Report Type: 
  Country: None (occurrence: None)
  Receive Date: 20070912
  Receipt Date: 20070907
  Transmission Date: 20080115
  Serious: Yes (Hospitalization, Other)
  Sender: FDA-Public Use
  Company Number: IN-AVENTIS-200718222GDDC

PATIENT
  Age: 56 Year
  Sex: Female
  Weight: 68 kg

DRUGS (4)
  1. LANTUS [Suspect]
     Indication: TYPE 2 DIABETES MELLITUS
     Route: 058
     Dates: start: 20070813
  2. LISPRO [Suspect]
     Indication: TYPE 2 DIABETES MELLITUS
     Route: 058
     Dates: start: 20070813
  3. METFORMIN HCL [Concomitant]
     Dosage: DOSE: UNK
  4. HUMALOG [Concomitant]
     Dosage: DOSE: UNK

REACTIONS (9)
  - DIABETIC FOOT [None]
  - FALL [None]
  - FOOT AMPUTATION [None]
  - GANGRENE [None]
  - HYPOGLYCAEMIA [None]
  - IMPAIRED HEALING [None]
  - LIMB INJURY [None]
  - SEPSIS [None]
  - TOE AMPUTATION [None]
